FAERS Safety Report 8033104-5 (Version None)
Quarter: 2011Q4

REPORT INFORMATION
  Report Type: 
  Country: None (occurrence: None)
  Receive Date: 20111228
  Receipt Date: 20111221
  Transmission Date: 20120403
  Serious: Yes (Hospitalization, Other)
  Sender: FDA-Public Use
  Company Number: 2010SP009673

PATIENT
  Age: 41 Year
  Sex: Female
  Weight: 58.9676 kg

DRUGS (2)
  1. NUVARING [Suspect]
     Indication: MENORRHAGIA
     Dosage: 1 DF
     Dates: start: 20020101, end: 20040801
  2. FLEXERIL [Concomitant]

REACTIONS (44)
  - VOMITING [None]
  - DIARRHOEA [None]
  - MICROCYTIC ANAEMIA [None]
  - IRON DEFICIENCY ANAEMIA [None]
  - LYMPHADENOPATHY MEDIASTINAL [None]
  - LIPOMA [None]
  - WEIGHT INCREASED [None]
  - DEPRESSION [None]
  - ACTIVITIES OF DAILY LIVING IMPAIRED [None]
  - UPPER RESPIRATORY TRACT INFECTION [None]
  - ABDOMINAL PAIN [None]
  - TOOTH ABSCESS [None]
  - UTERINE LEIOMYOMA [None]
  - PANIC DISORDER [None]
  - THROMBOSIS [None]
  - OVARIAN CYST [None]
  - LOSS OF CONTROL OF LEGS [None]
  - HAEMORRHOIDS [None]
  - PROCTITIS [None]
  - HIATUS HERNIA [None]
  - LYMPHADENOPATHY [None]
  - ACTIVATED PARTIAL THROMBOPLASTIN TIME PROLONGED [None]
  - POST THROMBOTIC SYNDROME [None]
  - RESTLESS LEGS SYNDROME [None]
  - DEEP VEIN THROMBOSIS [None]
  - PAIN [None]
  - CHEST PAIN [None]
  - MUSCLE STRAIN [None]
  - MENORRHAGIA [None]
  - HYPERCOAGULATION [None]
  - COSTOCHONDRITIS [None]
  - SYNCOPE [None]
  - BACK PAIN [None]
  - DUODENITIS [None]
  - VITAMIN B12 DEFICIENCY [None]
  - HYPOAESTHESIA [None]
  - SWELLING [None]
  - BREAST PAIN [None]
  - INJURY [None]
  - CONTUSION [None]
  - INTERNATIONAL NORMALISED RATIO DECREASED [None]
  - MENOMETRORRHAGIA [None]
  - ANXIETY [None]
  - STRESS [None]
